FAERS Safety Report 24257271 (Version 1)
Quarter: 2024Q3

REPORT INFORMATION
  Report Type: Spontaneous
  Country: US (occurrence: US)
  Receive Date: 20240828
  Receipt Date: 20240828
  Transmission Date: 20241016
  Serious: Yes (Life-Threatening, Hospitalization, Other)
  Sender: HIKMA
  Company Number: US-MLMSERVICE-20240807-PI154168-00152-1

PATIENT
  Age: 66 Year
  Sex: Female

DRUGS (4)
  1. FLUOROURACIL [Suspect]
     Active Substance: FLUOROURACIL
     Indication: Anal cancer stage III
     Dosage: UNKNOWN
     Route: 065
  2. FLUOROURACIL [Suspect]
     Active Substance: FLUOROURACIL
     Indication: Anal squamous cell carcinoma
  3. MITOMYCIN [Suspect]
     Active Substance: MITOMYCIN
     Indication: Anal cancer stage III
     Dosage: UNKNOWN
     Route: 065
  4. MITOMYCIN [Suspect]
     Active Substance: MITOMYCIN
     Indication: Anal squamous cell carcinoma

REACTIONS (10)
  - Female genital tract fistula [Recovered/Resolved]
  - Sepsis [Recovered/Resolved]
  - Urogenital fistula [Recovered/Resolved]
  - Radiation proctitis [Recovered/Resolved]
  - Soft tissue necrosis [Recovered/Resolved]
  - Radiation necrosis [Recovered/Resolved]
  - Acute kidney injury [Unknown]
  - Bacteroides infection [Recovered/Resolved]
  - Enterococcal infection [Recovered/Resolved]
  - Necrotising soft tissue infection [Recovered/Resolved]
